FAERS Safety Report 20210185 (Version 1)
Quarter: 2021Q4

REPORT INFORMATION
  Report Type: Other
  Country: KR (occurrence: None)
  Receive Date: 20211221
  Receipt Date: 20211221
  Transmission Date: 20220304
  Serious: Yes (Hospitalization)
  Sender: FDA-Public Use
  Company Number: KR-ROCHE-2980906

PATIENT
  Age: 70 Year
  Sex: Male
  Weight: 48.5 kg

DRUGS (4)
  1. ATEZOLIZUMAB [Suspect]
     Active Substance: ATEZOLIZUMAB
     Indication: Lung neoplasm malignant
     Dosage: MOST RECENT DOSE OF ATEZOLIZUMAB RECEIVED ON 30/NOV/2021?20/OCT/2021, 09/NOV/2021 PREVIOUS THERAPY
     Route: 041
     Dates: start: 20210929
  2. AMARYL [Concomitant]
     Active Substance: GLIMEPIRIDE
     Indication: Diabetes mellitus
     Route: 048
  3. ZEMIMET SR [Concomitant]
     Indication: Diabetes mellitus
     Route: 048
  4. EXONE [Concomitant]
     Indication: Hypertension
     Route: 048

REACTIONS (2)
  - Intestinal obstruction [Recovered/Resolved]
  - Interstitial lung disease [Recovering/Resolving]

NARRATIVE: CASE EVENT DATE: 20211103
